FAERS Safety Report 9091235 (Version 1)
Quarter: 2013Q1

REPORT INFORMATION
  Report Type: Spontaneous
  Country: GB (occurrence: GB)
  Receive Date: 20130201
  Receipt Date: 20130201
  Transmission Date: 20140127
  Serious: Yes (Other)
  Sender: FDA-Public Use
  Company Number: GB-BRISTOL-MYERS SQUIBB COMPANY-17155953

PATIENT
  Sex: Male

DRUGS (1)
  1. ORENCIA [Suspect]
     Dosage: 3 DOSES,INTERRUPTED AND RESTARTED
     Dates: start: 20121113

REACTIONS (1)
  - Ankle operation [Unknown]
